FAERS Safety Report 6144273-6 (Version None)
Quarter: 2009Q2

REPORT INFORMATION
  Report Type: 
  Country: None (occurrence: None)
  Receive Date: 20090406
  Receipt Date: 20090305
  Transmission Date: 20091009
  Serious: No
  Sender: FDA-Public Use
  Company Number: US-BAYER-200914883NA

PATIENT
  Sex: Female

DRUGS (1)
  1. YASMIN [Suspect]
     Indication: AMENORRHOEA
     Route: 048
     Dates: start: 20020101

REACTIONS (5)
  - FATIGUE [None]
  - FEELING ABNORMAL [None]
  - HEADACHE [None]
  - NO ADVERSE EVENT [None]
  - OLIGOMENORRHOEA [None]
